FAERS Safety Report 16962475 (Version 1)
Quarter: 2019Q4

REPORT INFORMATION
  Report Type: Spontaneous
  Country: US (occurrence: US)
  Receive Date: 20190908
  Receipt Date: 20190908
  Transmission Date: 20200122
  Serious: No
  Sender: FDA-Public Use
  Company Number: None

PATIENT
  Age: 52 Year
  Sex: Female

DRUGS (1)
  1. GILENYA [Suspect]
     Active Substance: FINGOLIMOD HYDROCHLORIDE
     Indication: MULTIPLE SCLEROSIS
     Route: 048
     Dates: start: 20190807

REACTIONS (5)
  - Gait disturbance [None]
  - Fall [None]
  - Multiple sclerosis relapse [None]
  - Cough [None]
  - Muscular weakness [None]

NARRATIVE: CASE EVENT DATE: 20190808
